FAERS Safety Report 8579515-0 (Version None)
Quarter: 2012Q3

REPORT INFORMATION
  Report Type: 
  Country: None (occurrence: None)
  Receive Date: 20120808
  Receipt Date: 20120802
  Transmission Date: 20120928
  Serious: Yes (Hospitalization)
  Sender: FDA-Public Use
  Company Number: IT-GLAXOSMITHKLINE-B0821263A

PATIENT
  Sex: Male

DRUGS (4)
  1. PREDNISONE TAB [Concomitant]
     Dosage: 80MG PER DAY
     Route: 048
     Dates: start: 20120214, end: 20120217
  2. ACYCLOVIR [Concomitant]
  3. ALKERAN [Suspect]
     Indication: MULTIPLE MYELOMA
     Dosage: 16MG PER DAY
     Route: 048
     Dates: start: 20120214, end: 20120217
  4. VELCADE [Suspect]
     Indication: MULTIPLE MYELOMA
     Dosage: 2.6MG PER DAY
     Route: 042
     Dates: start: 20120221, end: 20120228

REACTIONS (13)
  - ASPARTATE AMINOTRANSFERASE INCREASED [None]
  - ALANINE AMINOTRANSFERASE INCREASED [None]
  - BLOOD BILIRUBIN INCREASED [None]
  - BLOOD CREATININE INCREASED [None]
  - LIVER INJURY [None]
  - C-REACTIVE PROTEIN INCREASED [None]
  - MALAISE [None]
  - DYSPNOEA [None]
  - BLOOD ALKALINE PHOSPHATASE INCREASED [None]
  - GRAVITATIONAL OEDEMA [None]
  - GAMMA-GLUTAMYLTRANSFERASE INCREASED [None]
  - CYTOMEGALOVIRUS INFECTION [None]
  - HEPATITIS B [None]
